FAERS Safety Report 8135444-8 (Version None)
Quarter: 2012Q1

REPORT INFORMATION
  Report Type: 
  Country: None (occurrence: None)
  Receive Date: 20120214
  Receipt Date: 20120213
  Transmission Date: 20120608
  Serious: Yes (Hospitalization, Other)
  Sender: FDA-Public Use
  Company Number: FR-JNJFOC-20120204807

PATIENT
  Age: 34 Year
  Sex: Female

DRUGS (23)
  1. DOXORUBICIN HCL [Suspect]
     Dosage: NEO-AI CYCLE 1
     Route: 042
  2. NEUPOGEN [Suspect]
     Dosage: NEO-AI CYCLE 1
     Route: 065
  3. DOXORUBICIN HCL [Suspect]
     Dosage: PRE PARTUM TREATMENT
     Route: 042
  4. DOXORUBICIN HCL [Suspect]
     Dosage: PRE PARTUM TREATMENT
     Route: 042
  5. IFOSFAMIDE [Suspect]
     Dosage: PRE-PARTUM TREATMENT
     Route: 042
  6. CORTICOSTEROIDS [Concomitant]
     Indication: MATERNAL THERAPY TO ENHANCE FOETAL LUNG MATURITY
     Route: 065
  7. DOXORUBICIN HCL [Suspect]
     Indication: SPINDLE CELL SARCOMA
     Dosage: NEO-AI CYCLE 3
     Route: 042
  8. DOXORUBICIN HCL [Suspect]
     Dosage: NEO-AI CYCLE 2
     Route: 042
  9. METOCLOPRAMIDE [Concomitant]
     Indication: PROPHYLAXIS OF NAUSEA AND VOMITING
     Route: 042
  10. DOXORUBICIN HCL [Suspect]
     Dosage: NEO-AI CYCLE 2
     Route: 042
  11. DOXORUBICIN HCL [Suspect]
     Dosage: NEO-AI CYCLE 1
     Route: 042
  12. DOXORUBICIN HCL [Suspect]
     Dosage: NEO-AI CYCLE 3
     Route: 042
  13. NEUPOGEN [Suspect]
     Indication: SPINDLE CELL SARCOMA
     Dosage: NEO-AI CYCLE 2
     Route: 065
  14. NEUPOGEN [Suspect]
     Dosage: NEO-AI CYCLE 3
     Route: 065
  15. DOXORUBICIN HCL [Suspect]
     Dosage: POST PARTUM TREATMENT
     Route: 042
  16. IFOSFAMIDE [Suspect]
     Indication: SPINDLE CELL SARCOMA
     Dosage: NEO-AI CYCLE 2
     Route: 042
  17. IFOSFAMIDE [Suspect]
     Dosage: NEO-AI CYCLE 1
     Route: 042
  18. IFOSFAMIDE [Suspect]
     Dosage: NEO-AI CYCLE 3
     Route: 042
  19. ONDANSETRON [Concomitant]
     Route: 065
  20. IFOSFAMIDE [Suspect]
     Dosage: POST-PARTUM TREATMENT
     Route: 042
  21. ONDANSETRON [Concomitant]
     Indication: PROPHYLAXIS OF NAUSEA AND VOMITING
     Route: 065
  22. DOXORUBICIN HCL [Suspect]
     Dosage: POST PARTUM TREATMENT
     Route: 042
  23. METOCLOPRAMIDE [Concomitant]
     Route: 042

REACTIONS (6)
  - ALOPECIA [None]
  - OLIGOHYDRAMNIOS [None]
  - HYPOALBUMINAEMIA [None]
  - LYMPHOPENIA [None]
  - PREMATURE DELIVERY [None]
  - MATERNAL EXPOSURE DURING PREGNANCY [None]
